FAERS Safety Report 5828761-5 (Version None)
Quarter: 2008Q3

REPORT INFORMATION
  Report Type: 
  Country: None (occurrence: None)
  Receive Date: 20080729
  Receipt Date: 20080718
  Transmission Date: 20090109
  Serious: Yes (Other)
  Sender: FDA-Public Use
  Company Number: URSO-2008-071

PATIENT
  Age: 70 Year
  Sex: Female

DRUGS (2)
  1. URSO          (URSODEOXYCHOLIC ACID) [Suspect]
     Indication: HEPATITIS
     Dosage: ORAL
     Route: 048
  2. CARBIDOPA AND LEVODOPA [Suspect]
     Dosage: 4 DF, ORAL
     Route: 048
     Dates: start: 20070526

REACTIONS (1)
  - ARRHYTHMIA [None]
